FAERS Safety Report 19287156 (Version 1)
Quarter: 2021Q2

REPORT INFORMATION
  Report Type: Report from Study
  Country: US (occurrence: US)
  Receive Date: 20210521
  Receipt Date: 20210521
  Transmission Date: 20210717
  Serious: Yes (Hospitalization)
  Sender: FDA-Public Use
  Company Number: US-JNJFOC-20210530559

PATIENT
  Age: 28 Year
  Sex: Female
  Weight: 55.5 kg

DRUGS (2)
  1. ERDAFITINIB. [Suspect]
     Active Substance: ERDAFITINIB
     Indication: NASOPHARYNGEAL CANCER
     Dosage: C1D1
     Route: 048
     Dates: start: 20201222
  2. ERDAFITINIB. [Suspect]
     Active Substance: ERDAFITINIB
     Dosage: C4D1?DOSE REDUCTION DUE TO DIARRHEA AND INTOLERABLE ABDOMINAL PAIN, GR 2
     Route: 048
     Dates: start: 20210427, end: 20210510

REACTIONS (2)
  - Diarrhoea [Recovered/Resolved]
  - Abdominal pain [Recovered/Resolved]

NARRATIVE: CASE EVENT DATE: 20210512
